FAERS Safety Report 7962002 (Version 5)
Quarter: 2013Q4

REPORT INFORMATION
  Report Type: Spontaneous
  Country: JP (occurrence: JP)
  Receive Date: 20110526
  Receipt Date: 20131212
  Transmission Date: 20140711
  Serious: Yes (Other)
  Sender: FDA-Public Use
  Company Number: PHHY2011JP42463

PATIENT
  Age: 63 Year
  Sex: Female
  Weight: 34 kg

DRUGS (4)
  1. ZOMETA [Suspect]
     Indication: METASTASES TO BONE
     Dosage: 4 MG, ONCE EVERY MONTH
     Route: 042
     Dates: start: 20080926
  2. LENDORMIN [Concomitant]
     Indication: INSOMNIA
     Dosage: 1 DF, UNK
     Route: 048
  3. MAGNESIUM OXIDE [Concomitant]
     Indication: CONSTIPATION
     Dosage: 1.5 G, UNK
     Route: 048
  4. NOLVADEX [Concomitant]
     Indication: BREAST CANCER
     Dosage: 2 DF, UNK
     Route: 048

REACTIONS (7)
  - Osteonecrosis of jaw [Not Recovered/Not Resolved]
  - Pain in jaw [Unknown]
  - Dyskinesia [Unknown]
  - Exposed bone in jaw [Unknown]
  - Bone lesion [Unknown]
  - Hypoaesthesia oral [Unknown]
  - Osteolysis [Unknown]
